FAERS Safety Report 24940521 (Version 5)
Quarter: 2025Q3

REPORT INFORMATION
  Report Type: Spontaneous
  Country: GB (occurrence: GB)
  Receive Date: 20250207
  Receipt Date: 20250802
  Transmission Date: 20251021
  Serious: Yes (Death, Other)
  Sender: ALEXION PHARMACEUTICALS
  Company Number: GB-AstraZeneca-CH-00800892A

PATIENT
  Age: 66 Year
  Sex: Male

DRUGS (3)
  1. TEZSPIRE [Suspect]
     Active Substance: TEZEPELUMAB-EKKO
     Indication: Asthma
     Route: 065
  2. TEZSPIRE [Suspect]
     Active Substance: TEZEPELUMAB-EKKO
  3. ALBUTEROL [Concomitant]
     Active Substance: ALBUTEROL
     Indication: Asthma
     Route: 065

REACTIONS (6)
  - Respiratory arrest [Fatal]
  - Cardiac arrest [Fatal]
  - Pneumonia [Unknown]
  - Lower respiratory tract infection [Unknown]
  - Hypoxic-ischaemic encephalopathy [Unknown]
  - Retention cyst [Unknown]

NARRATIVE: CASE EVENT DATE: 20241115
